FAERS Safety Report 8578769-4 (Version None)
Quarter: 2012Q3

REPORT INFORMATION
  Report Type: 
  Country: None (occurrence: None)
  Receive Date: 20120808
  Receipt Date: 20120731
  Transmission Date: 20120928
  Serious: Yes (Hospitalization)
  Sender: FDA-Public Use
  Company Number: FR-B.I. PHARMACEUTICALS,INC./RIDGEFIELD-2012-FF-01011FF

PATIENT
  Sex: Male

DRUGS (5)
  1. CELESTONE [Concomitant]
     Indication: HYPERSENSITIVITY
     Dosage: 6 MG
     Route: 048
  2. PRADAXA [Suspect]
     Indication: ARRHYTHMIA
     Dosage: 220 MG
     Route: 048
     Dates: start: 20120329, end: 20120425
  3. CELESTONE [Concomitant]
     Dosage: 3 MG
     Route: 048
     Dates: end: 20120413
  4. CORDARONE [Concomitant]
     Indication: ARRHYTHMIA
     Dosage: 200 MG
     Route: 048
     Dates: start: 20120330
  5. SPIRIVA [Concomitant]
     Indication: RESPIRATORY FAILURE
     Dosage: 18 MCG
     Route: 055

REACTIONS (3)
  - PYREXIA [None]
  - ERYTHEMA [None]
  - ASTHENIA [None]
